FAERS Safety Report 4427253-8 (Version None)
Quarter: 2004Q3

REPORT INFORMATION
  Report Type: 
  Country: None (occurrence: None)
  Receive Date: 20040817
  Receipt Date: 20040811
  Transmission Date: 20050211
  Serious: Yes (Other)
  Sender: FDA-Public Use
  Company Number: 200417937GDDC

PATIENT
  Age: 46 Year
  Sex: Female

DRUGS (5)
  1. ARAVA [Suspect]
     Route: 048
     Dates: start: 20031101
  2. PREDNISOLONE [Concomitant]
     Indication: RHEUMATOID ARTHRITIS
     Route: 048
  3. SULFASALAZINE [Concomitant]
     Route: 048
  4. ATENOLOL [Concomitant]
     Indication: BLOOD PRESSURE INCREASED
     Route: 048
  5. BENDROFLUAZIDE [Concomitant]
     Indication: BLOOD PRESSURE INCREASED
     Route: 048

REACTIONS (1)
  - GRAND MAL CONVULSION [None]
